FAERS Safety Report 4950650-9 (Version None)
Quarter: 2006Q1

REPORT INFORMATION
  Report Type: 
  Country: None (occurrence: None)
  Receive Date: 20060321
  Receipt Date: 20060321
  Transmission Date: 20060701
  Serious: Yes (Life-Threatening)
  Sender: FDA-Public Use
  Company Number: None

PATIENT
  Age: 91 Year
  Sex: Female

DRUGS (2)
  1. COUMADIN [Suspect]
     Dosage: 2.5 MG PO DAILY
     Route: 048
     Dates: end: 20041227
  2. SEPTRA DS [Suspect]
     Indication: URINARY TRACT INFECTION
     Dosage: DS 1 BID X 10 DAYS
     Dates: start: 20041213, end: 20041223

REACTIONS (2)
  - CEREBRAL HAEMORRHAGE [None]
  - COAGULOPATHY [None]
